FAERS Safety Report 6409652-8 (Version None)
Quarter: 2009Q4

REPORT INFORMATION
  Report Type: 
  Country: None (occurrence: None)
  Receive Date: 20091021
  Receipt Date: 20091021
  Transmission Date: 20100525
  Serious: Yes (Life-Threatening)
  Sender: FDA-Public Use
  Company Number: None

PATIENT
  Age: 62 Year
  Sex: Female
  Weight: 68.0396 kg

DRUGS (1)
  1. AMBIEN [Suspect]
     Indication: INSOMNIA

REACTIONS (11)
  - ACCIDENTAL EXPOSURE [None]
  - AGGRESSION [None]
  - ALCOHOL USE [None]
  - ANGER [None]
  - DISORIENTATION [None]
  - EMOTIONAL DISORDER [None]
  - FEELING DRUNK [None]
  - MEDICATION ERROR [None]
  - PSYCHOTIC BEHAVIOUR [None]
  - STUPOR [None]
  - SUICIDAL IDEATION [None]
